FAERS Safety Report 6106896-X (Version None)
Quarter: 2009Q1

REPORT INFORMATION
  Report Type: 
  Country: None (occurrence: None)
  Receive Date: 20090305
  Receipt Date: 20090220
  Transmission Date: 20090719
  Serious: Yes (Hospitalization)
  Sender: FDA-Public Use
  Company Number: CAR-2009-011

PATIENT
  Age: 19 Year
  Sex: Female

DRUGS (4)
  1. CARAFATE [Suspect]
     Dosage: 1GM, QID,
  2. NEURONTIN [Suspect]
     Dosage: 500MG, TID, ORAL
     Route: 048
  3. METOCLOPRAMIDE HCL [Suspect]
     Dosage: 5MG, Q8H, ORAL
     Route: 048
  4. 3 OTHER LIQUIDS (NON-SPECIFIED) [Concomitant]

REACTIONS (3)
  - DRUG INTERACTION [None]
  - HYPERGLYCAEMIA [None]
  - IMPAIRED GASTRIC EMPTYING [None]
